FAERS Safety Report 8089495-2 (Version None)
Quarter: 2012Q1

REPORT INFORMATION
  Report Type: 
  Country: None (occurrence: None)
  Receive Date: 20120128
  Receipt Date: 20110712
  Transmission Date: 20120608
  Serious: No
  Sender: FDA-Public Use
  Company Number: US-ABBOTT-11P-163-0838388-00

PATIENT
  Age: 71 Year
  Sex: Female

DRUGS (9)
  1. ACIPHEX [Concomitant]
     Indication: GASTROOESOPHAGEAL REFLUX DISEASE
  2. PRISTIQ [Concomitant]
     Indication: ANTIDEPRESSANT THERAPY
  3. SYNTHROID [Concomitant]
     Indication: BLOOD THYROID STIMULATING HORMONE DECREASED
  4. VYVANSE [Concomitant]
     Indication: DYSLEXIA
     Dosage: DAILY
  5. CLONAZEPAM [Concomitant]
     Indication: PRODUCT USED FOR UNKNOWN INDICATION
  6. VICODIN [Concomitant]
     Indication: PAIN
  7. HUMIRA [Suspect]
     Indication: PSORIATIC ARTHROPATHY
     Dates: start: 20100501
  8. NAPROXEN (ALEVE) [Concomitant]
     Indication: PAIN
  9. METHOTREXATE [Concomitant]
     Indication: PSORIATIC ARTHROPATHY
     Dosage: BIWEEKLY

REACTIONS (2)
  - INJECTION SITE VESICLES [None]
  - INJECTION SITE PAIN [None]
